FAERS Safety Report 8978011 (Version 1)
Quarter: 2012Q4

REPORT INFORMATION
  Report Type: 
  Country: FR (occurrence: FR)
  Receive Date: 20121220
  Receipt Date: 20121220
  Transmission Date: 20130627
  Serious: Yes (Other)
  Sender: FDA-Public Use
  Company Number: FR-MERCK-1212FRA004515

PATIENT
  Sex: Male

DRUGS (2)
  1. VIRAFERONPEG [Suspect]
     Indication: GLEICH^S SYNDROME
     Dosage: 50 Microgram, qw
     Route: 058
  2. HYDROCORTISONE [Concomitant]
     Indication: ADRENAL INSUFFICIENCY
     Dosage: 10 mg, qd

REACTIONS (1)
  - Autoimmune thyroiditis [Not Recovered/Not Resolved]
